FAERS Safety Report 4848354-6 (Version None)
Quarter: 2005Q4

REPORT INFORMATION
  Report Type: 
  Country: None (occurrence: None)
  Receive Date: 20051208
  Receipt Date: 20050802
  Transmission Date: 20060501
  Serious: Yes (Disabling)
  Sender: FDA-Public Use
  Company Number: 2005AP04279

PATIENT
  Age: 29202 Day
  Sex: Female
  Weight: 35.3 kg

DRUGS (4)
  1. OMEPRAL [Suspect]
     Indication: GASTRIC ULCER HAEMORRHAGE
     Route: 048
     Dates: start: 20050418, end: 20050701
  2. DIGITOXIN TAB [Concomitant]
     Indication: CARDIAC FAILURE
     Route: 048
     Dates: start: 20050401
  3. DIART [Concomitant]
     Indication: CARDIAC FAILURE
     Route: 048
     Dates: start: 20050401
  4. BIO THREE [Concomitant]
     Indication: GASTROENTERITIS
     Route: 048
     Dates: start: 20050418

REACTIONS (1)
  - APLASTIC ANAEMIA [None]
